FAERS Safety Report 23971860 (Version 1)
Quarter: 2024Q2

REPORT INFORMATION
  Report Type: Spontaneous
  Country: US (occurrence: US)
  Receive Date: 20240613
  Receipt Date: 20240613
  Transmission Date: 20240716
  Serious: No
  Sender: FDA-Public Use
  Company Number: US-STI Pharma LLC-2158045

PATIENT
  Age: 80 Year
  Sex: Male

DRUGS (2)
  1. ETHAMBUTOL HYDROCHLORIDE [Suspect]
     Active Substance: ETHAMBUTOL HYDROCHLORIDE
  2. RIFAMPIN [Concomitant]
     Active Substance: RIFAMPIN

REACTIONS (3)
  - Visual impairment [Unknown]
  - Vomiting [Unknown]
  - Nausea [Unknown]
